FAERS Safety Report 10264180 (Version 1)
Quarter: 2014Q2

REPORT INFORMATION
  Report Type: Spontaneous
  Country: GB (occurrence: None)
  Receive Date: 20140624
  Receipt Date: 20140624
  Transmission Date: 20141212
  Serious: Yes (Hospitalization)
  Sender: FDA-Public Use
  Company Number: AUR-APL-2014-06606

PATIENT
  Age: 56 Year
  Sex: Male
  Weight: 90 kg

DRUGS (6)
  1. SIMVASTATIN [Suspect]
     Indication: HYPERCHOLESTEROLAEMIA
     Route: 048
     Dates: start: 20100107, end: 20140521
  2. AMLODIPINE 5 MG (AMLODIPINE) UNKNOWN, 5MG [Suspect]
     Indication: HYPERTENSION
     Dates: start: 2010
  3. BECLOMETASONE DIPROPIONATE [Concomitant]
  4. ENALAPRIL MALEATE [Concomitant]
  5. FOLIC ACID [Concomitant]
  6. METHOTREXATE [Concomitant]

REACTIONS (9)
  - Blood pressure increased [None]
  - Dizziness [None]
  - Extrasystoles [None]
  - Heart rate increased [None]
  - Labelled drug-drug interaction medication error [None]
  - Blood potassium increased [None]
  - Stress at work [None]
  - Insomnia [None]
  - Condition aggravated [None]
